FAERS Safety Report 24058558 (Version 1)
Quarter: 2024Q3

REPORT INFORMATION
  Report Type: Other
  Country: KR (occurrence: KR)
  Receive Date: 20240708
  Receipt Date: 20240708
  Transmission Date: 20241017
  Serious: Yes (Life-Threatening, Hospitalization, Other)
  Sender: INNOGENIX
  Company Number: KR-Innogenix, LLC-2158900

PATIENT
  Age: 77 Year
  Sex: Female

DRUGS (12)
  1. BACLOFEN [Suspect]
     Active Substance: BACLOFEN
     Indication: Myalgia
     Route: 065
  2. PREGABALIN [Concomitant]
     Active Substance: PREGABALIN
     Route: 065
  3. CHLORPHENIRAMINE [Concomitant]
     Active Substance: CHLORPHENIRAMINE
     Route: 065
  4. PSEUDOEPHEDRINE. [Concomitant]
     Active Substance: PSEUDOEPHEDRINE HYDROCHLORIDE
     Route: 065
  5. NICARDIPINE HYDROCHLORIDE [Concomitant]
     Active Substance: NICARDIPINE HYDROCHLORIDE
     Route: 065
  6. METHYLEPHEDRINE [Concomitant]
     Active Substance: METHYLEPHEDRINE
     Route: 065
  7. METFORMIN [Concomitant]
     Active Substance: METFORMIN HYDROCHLORIDE
     Route: 065
  8. GLIMEPIRIDE [Concomitant]
     Active Substance: GLIMEPIRIDE
     Route: 065
  9. EPERISONE [Concomitant]
     Active Substance: EPERISONE
     Route: 065
  10. ACECLOFENAC [Concomitant]
     Active Substance: ACECLOFENAC
     Route: 065
  11. TRAMADOL HYDROCHLORIDE [Concomitant]
     Active Substance: TRAMADOL HYDROCHLORIDE
     Route: 065
  12. ACETAMINOPHEN [Concomitant]
     Active Substance: ACETAMINOPHEN
     Route: 065

REACTIONS (14)
  - Depressed level of consciousness [Recovering/Resolving]
  - Dizziness [Recovering/Resolving]
  - Vomiting [Recovering/Resolving]
  - Nausea [Recovering/Resolving]
  - Stupor [Recovering/Resolving]
  - Electroencephalogram abnormal [Recovering/Resolving]
  - Cerebral artery stenosis [Recovering/Resolving]
  - Vertebral artery stenosis [Recovering/Resolving]
  - Chronic kidney disease [Recovering/Resolving]
  - Toxicity to various agents [Recovering/Resolving]
  - Mental status changes [Recovering/Resolving]
  - Fall [Recovering/Resolving]
  - Loss of consciousness [Recovering/Resolving]
  - CSF protein increased [Recovering/Resolving]
